FAERS Safety Report 7640203-6 (Version None)
Quarter: 2011Q3

REPORT INFORMATION
  Report Type: 
  Country: None (occurrence: None)
  Receive Date: 20110728
  Receipt Date: 20110427
  Transmission Date: 20111222
  Serious: Yes (Other)
  Sender: FDA-Public Use
  Company Number: CA-BAYER-2011-036020

PATIENT
  Sex: Female

DRUGS (1)
  1. YAZ [Suspect]
     Dosage: UNK
     Dates: end: 20110425

REACTIONS (7)
  - MONONUCLEOSIS SYNDROME [None]
  - PHARYNGEAL OEDEMA [None]
  - PAIN IN EXTREMITY [None]
  - PALPITATIONS [None]
  - DYSPNOEA [None]
  - EMOTIONAL DISORDER [None]
  - URINARY TRACT INFECTION [None]
